FAERS Safety Report 4920872-1 (Version None)
Quarter: 2006Q1

REPORT INFORMATION
  Report Type: 
  Country: None (occurrence: None)
  Receive Date: 20060217
  Receipt Date: 20060208
  Transmission Date: 20060701
  Serious: Yes (Other)
  Sender: FDA-Public Use
  Company Number: HQWYE739509FEB06

PATIENT
  Age: 50 Year
  Sex: Female

DRUGS (4)
  1. EFFEXOR XR [Suspect]
     Dosage: ^STARTER PACK OF XR^ ORAL
     Route: 048
     Dates: start: 20060108
  2. LIPITOR [Suspect]
  3. METFORMIN HCL [Suspect]
     Indication: DIABETES MELLITUS
  4. NOROXIN [Suspect]
     Indication: CHOLELITHIASIS
     Dates: start: 20060116

REACTIONS (3)
  - CHOLELITHIASIS [None]
  - DRUG INTERACTION [None]
  - HEPATITIS [None]
